FAERS Safety Report 6258409-X (Version None)
Quarter: 2009Q3

REPORT INFORMATION
  Report Type: 
  Country: None (occurrence: None)
  Receive Date: 20090707
  Receipt Date: 20090625
  Transmission Date: 20100115
  Serious: Yes (Death, Hospitalization, Other)
  Sender: FDA-Public Use
  Company Number: BR-PFIZER INC-2009232315

PATIENT
  Age: 43 Year

DRUGS (4)
  1. PREDNISONE [Suspect]
     Dosage: 7.5 MG, UID/1X/DAY
     Route: 065
  2. HYDROCORTISONE AND HYDROCORTISONE ACETATE AND HYDROCORTISONE CIPIONATE [Suspect]
     Dosage: 100 MG, 2X/DAY
  3. TACROLIMUS [Suspect]
     Indication: LIVER TRANSPLANT
     Dosage: 12 MG, 2X/DAY
     Route: 065
  4. MYCOPHENOLATE MOFETIL [Suspect]

REACTIONS (6)
  - ACUTE RESPIRATORY DISTRESS SYNDROME [None]
  - CARDIO-RESPIRATORY ARREST [None]
  - CYTOMEGALOVIRUS INFECTION [None]
  - HYPERKALAEMIA [None]
  - HYPONATRAEMIA [None]
  - STRONGYLOIDIASIS [None]
